FAERS Safety Report 16004881 (Version 1)
Quarter: 2019Q1

REPORT INFORMATION
  Report Type: Spontaneous
  Country: US (occurrence: US)
  Receive Date: 20190226
  Receipt Date: 20190226
  Transmission Date: 20190418
  Serious: Yes (Life-Threatening, Hospitalization, Other)
  Sender: FDA-Public Use
  Company Number: US-TEVA-2019-US-1016918

PATIENT
  Age: 52 Year
  Sex: Female
  Weight: 97.61 kg

DRUGS (3)
  1. CAMBER LEVOFLOXACIN [Interacting]
     Active Substance: LEVOFLOXACIN
     Indication: PNEUMONIA
     Route: 048
     Dates: start: 201801, end: 20180125
  2. TEVA AZITHROMYCIN [Interacting]
     Active Substance: AZITHROMYCIN ANHYDROUS
     Indication: INFLUENZA
  3. TEVA AZITHROMYCIN [Suspect]
     Active Substance: AZITHROMYCIN ANHYDROUS
     Indication: PNEUMONIA
     Dosage: 300 MILLIGRAM DAILY;
     Route: 048
     Dates: start: 20180124, end: 20180125

REACTIONS (7)
  - Atrial fibrillation [Recovered/Resolved]
  - Product label confusion [None]
  - Drug interaction [Unknown]
  - Cough [Unknown]
  - Inappropriate schedule of product administration [None]
  - Pain [Recovered/Resolved]
  - Heart rate increased [Unknown]

NARRATIVE: CASE EVENT DATE: 20180124
